FAERS Safety Report 13611870 (Version 3)
Quarter: 2017Q3

REPORT INFORMATION
  Report Type: Report from Study
  Country: ES (occurrence: ES)
  Receive Date: 20170605
  Receipt Date: 20170712
  Transmission Date: 20171127
  Serious: Yes (Other)
  Sender: FDA-Public Use
  Company Number: ES-ROCHE-1942323

PATIENT

DRUGS (2)
  1. ALTEPLASE. [Suspect]
     Active Substance: ALTEPLASE
     Indication: ISCHAEMIC STROKE
     Dosage: 10% DOSE
     Route: 040
  2. ALTEPLASE. [Suspect]
     Active Substance: ALTEPLASE
     Dosage: REST 90% DOSE
     Route: 042

REACTIONS (1)
  - Cerebral haemorrhage [Unknown]
